FAERS Safety Report 12620489 (Version 2)
Quarter: 2024Q4

REPORT INFORMATION
  Report Type: Spontaneous
  Country: AU (occurrence: AU)
  Receive Date: 20160804
  Receipt Date: 20241126
  Transmission Date: 20250114
  Serious: Yes (Other)
  Sender: ROCHE
  Company Number: AU-002147023-PHHY2016AU102776

PATIENT
  Sex: Female

DRUGS (3)
  1. LUCENTIS [Suspect]
     Active Substance: RANIBIZUMAB
     Indication: Product used for unknown indication
     Dosage: UNK
     Route: 050
     Dates: start: 20100902
  2. XALATAN [Suspect]
     Active Substance: LATANOPROST
     Indication: Intraocular pressure decreased
     Dosage: 1 DROP AT NIGHT
     Route: 065
     Dates: start: 201007, end: 20150423
  3. CEFUROXIME [Suspect]
     Active Substance: CEFUROXIME
     Indication: Wheezing
     Dosage: 250 MG, UNK
     Route: 065
     Dates: start: 20160624, end: 20160714

REACTIONS (7)
  - Glaucoma [Unknown]
  - Blepharitis [Unknown]
  - Vision blurred [Unknown]
  - Eye inflammation [Unknown]
  - Eye irritation [Not Recovered/Not Resolved]
  - Device defective [Unknown]
  - Hypokinesia [Not Recovered/Not Resolved]
